FAERS Safety Report 7598408-9 (Version None)
Quarter: 2011Q3

REPORT INFORMATION
  Report Type: 
  Country: None (occurrence: None)
  Receive Date: 20110708
  Receipt Date: 20110628
  Transmission Date: 20111222
  Serious: Yes (Hospitalization)
  Sender: FDA-Public Use
  Company Number: BR-ASTRAZENECA-2011SE05689

PATIENT
  Age: 61 Year
  Sex: Female
  Weight: 77 kg

DRUGS (10)
  1. PRESSAT [Concomitant]
  2. ARIMIDEX [Suspect]
     Indication: BREAST CANCER
     Route: 048
     Dates: start: 20081201
  3. HYGROTON [Concomitant]
  4. ATACAND HCT [Suspect]
     Indication: HYPERTENSION
     Dosage: 16/12.5 MG DAILY
     Route: 048
     Dates: start: 20070101, end: 20101201
  5. ATACAND HCT [Suspect]
     Dosage: 16/12.5 MG
     Route: 048
  6. TAMOXIFEN CITRATE [Concomitant]
     Dates: end: 20070101
  7. CALCIUM CARBONATE [Concomitant]
     Indication: BONE DISORDER
     Route: 048
     Dates: start: 20081201
  8. ATACAND HCT [Suspect]
     Indication: HYPERTENSION
     Dosage: 16/5 MG DAILY
     Route: 048
     Dates: start: 20101201
  9. HYGROTON [Concomitant]
  10. SIMVASTATIN [Concomitant]

REACTIONS (11)
  - PAIN IN EXTREMITY [None]
  - HYPERCHOLESTEROLAEMIA [None]
  - OEDEMA PERIPHERAL [None]
  - ASTHENIA [None]
  - DIZZINESS [None]
  - BLOOD PRESSURE INADEQUATELY CONTROLLED [None]
  - BREAST CANCER [None]
  - ARTHRALGIA [None]
  - DRUG INEFFECTIVE [None]
  - HYPOTENSION [None]
  - LYMPHADENECTOMY [None]
